FAERS Safety Report 16213799 (Version 6)
Quarter: 2019Q2

REPORT INFORMATION
  Report Type: Other
  Country: DE (occurrence: DE)
  Receive Date: 20190418
  Receipt Date: 20190606
  Transmission Date: 20190711
  Serious: Yes (Life-Threatening)
  Sender: FDA-Public Use
  Company Number: DE-CHIESI USA, INC.-DE-2019CHI000145

PATIENT

DRUGS (2)
  1. CUROSURF [Suspect]
     Active Substance: PORACTANT ALFA
     Dosage: 120 MG, SINGLE
     Route: 007
     Dates: start: 20190322, end: 20190322
  2. CUROSURF [Suspect]
     Active Substance: PORACTANT ALFA
     Indication: NEONATAL RESPIRATORY DISTRESS SYNDROME
     Dosage: 120 MG, SINGLE
     Route: 007
     Dates: start: 20190321, end: 20190321

REACTIONS (6)
  - Persistent foetal circulation [Recovered/Resolved]
  - Pulmonary hypertension [Recovered/Resolved]
  - End-tidal CO2 decreased [Recovered/Resolved]
  - Hypercapnia [Recovered/Resolved]
  - Condition aggravated [Recovered/Resolved]
  - Underdose [Unknown]

NARRATIVE: CASE EVENT DATE: 20190321
